FAERS Safety Report 9452524 (Version 3)
Quarter: 2013Q4

REPORT INFORMATION
  Report Type: Spontaneous
  Country: US (occurrence: US)
  Receive Date: 20130812
  Receipt Date: 20131002
  Transmission Date: 20140711
  Serious: No
  Sender: FDA-Public Use
  Company Number: US-PFIZER INC-2013230955

PATIENT
  Age: 52 Year
  Sex: Female
  Weight: 77.1 kg

DRUGS (6)
  1. EFFEXOR XR [Suspect]
     Dosage: UNK
  2. VENLAFAXINE HCL [Suspect]
     Indication: ANXIETY
     Dosage: 37.5 MG, 3X/DAY
     Route: 048
     Dates: end: 20130531
  3. VENLAFAXINE HCL [Suspect]
     Indication: PANIC ATTACK
     Dosage: 37.5 MG, 2X/DAY
     Route: 048
     Dates: start: 20130601
  4. VENLAFAXINE HCL [Suspect]
     Dosage: 37.5 MG, 1X/DAY
     Route: 048
  5. VENLAFAXINE HCL [Suspect]
     Dosage: 37.5 MG, ALTERNATE DAY
     Route: 048
     Dates: end: 20130802
  6. ATENOLOL [Concomitant]
     Indication: CARDIAC DISORDER
     Dosage: UNK

REACTIONS (7)
  - Withdrawal syndrome [Unknown]
  - Blood cholesterol increased [Unknown]
  - Renal disorder [Unknown]
  - Nausea [Unknown]
  - Agitation [Unknown]
  - Diarrhoea [Unknown]
  - Mood swings [Unknown]
